FAERS Safety Report 4882665-3 (Version None)
Quarter: 2006Q1

REPORT INFORMATION
  Report Type: 
  Country: None (occurrence: None)
  Receive Date: 20060113
  Receipt Date: 20051228
  Transmission Date: 20060701
  Serious: Yes (Death, Hospitalization)
  Sender: FDA-Public Use
  Company Number: 2005BI020727

PATIENT
  Age: 56 Year
  Sex: Male

DRUGS (1)
  1. AVONEX [Suspect]
     Indication: MULTIPLE SCLEROSIS
     Dosage: 30 UG; QW; IM
     Route: 030
     Dates: start: 19990110, end: 20050101

REACTIONS (4)
  - APPENDICITIS PERFORATED [None]
  - CARDIAC ARREST [None]
  - CARDIAC FAILURE [None]
  - HYPOAESTHESIA [None]
